FAERS Safety Report 15499538 (Version 1)
Quarter: 2018Q4

REPORT INFORMATION
  Report Type: Spontaneous
  Country: US (occurrence: US)
  Receive Date: 20181008
  Receipt Date: 20181008
  Transmission Date: 20190205
  Serious: Yes (Life-Threatening, Disabling)
  Sender: FDA-Public Use
  Company Number: None

PATIENT
  Age: 35 Year
  Sex: Male
  Weight: 96.75 kg

DRUGS (1)
  1. ZONNIC NICOTINE [Suspect]
     Active Substance: NICOTINE
     Indication: SMOKING CESSATION THERAPY
     Dosage: ?          QUANTITY:10 PIECES;?
     Route: 048
     Dates: start: 20181004, end: 20181004

REACTIONS (8)
  - Nausea [None]
  - Diarrhoea [None]
  - Confusional state [None]
  - Malaise [None]
  - Decreased appetite [None]
  - Toxicity to various agents [None]
  - Dehydration [None]
  - Urinary incontinence [None]

NARRATIVE: CASE EVENT DATE: 20181004
